FAERS Safety Report 5897146-8 (Version None)
Quarter: 2008Q3

REPORT INFORMATION
  Report Type: 
  Country: None (occurrence: None)
  Receive Date: 20080924
  Receipt Date: 20080428
  Transmission Date: 20090109
  Serious: Yes (Other)
  Sender: FDA-Public Use
  Company Number: US-ASTRAZENECA-2008UW08648

PATIENT
  Age: 68 Year
  Sex: Female

DRUGS (5)
  1. SEROQUEL [Suspect]
     Indication: BIPOLAR DISORDER
     Route: 048
     Dates: start: 20040101
  2. CLONAZEPAM [Concomitant]
  3. METOPROLOL TARTRATE [Concomitant]
  4. QUINAPRIL [Concomitant]
  5. WELLBUTRIN [Concomitant]

REACTIONS (7)
  - CATARACT [None]
  - DIARRHOEA [None]
  - GLUCOSE TOLERANCE IMPAIRED [None]
  - HEART RATE INCREASED [None]
  - HYPERTENSION [None]
  - HYPOAESTHESIA [None]
  - URINARY TRACT INFECTION [None]
